FAERS Safety Report 9226961 (Version 1)
Quarter: 2013Q2

REPORT INFORMATION
  Report Type: Spontaneous
  Country: US (occurrence: US)
  Receive Date: 20130412
  Receipt Date: 20130412
  Transmission Date: 20140414
  Serious: No
  Sender: FDA-Public Use
  Company Number: US-BIOGENIDEC-2013BI031793

PATIENT
  Age: 56 Year
  Sex: Female

DRUGS (3)
  1. TYSABRI [Suspect]
     Indication: MULTIPLE SCLEROSIS
     Route: 042
     Dates: start: 20130319
  2. HYPERTENSIVE DRUGS [Concomitant]
  3. GABAPENTIN [Concomitant]

REACTIONS (6)
  - Migraine [Unknown]
  - Hypoaesthesia [Unknown]
  - Paraesthesia [Unknown]
  - Sensory disturbance [Unknown]
  - Fatigue [Unknown]
  - Hypertension [Recovered/Resolved]
